FAERS Safety Report 8261593-X (Version None)
Quarter: 2012Q2

REPORT INFORMATION
  Report Type: 
  Country: None (occurrence: None)
  Receive Date: 20120405
  Receipt Date: 20120326
  Transmission Date: 20120825
  Serious: Yes (Disabling, Other)
  Sender: FDA-Public Use
  Company Number: US-CELGENEUS-163-21880-12030434

PATIENT
  Sex: Female

DRUGS (9)
  1. REVLIMID [Suspect]
     Dosage: 10 MILLIGRAM
     Route: 048
     Dates: start: 20120209, end: 20120307
  2. ZOFRAN [Concomitant]
     Route: 065
  3. ALBUTEROL [Concomitant]
     Route: 065
  4. MULTI-VITAMINS [Concomitant]
     Route: 065
  5. REVLIMID [Suspect]
     Dosage: 10 MILLIGRAM
     Route: 048
     Dates: start: 20120301
  6. ACYCLOVIR [Concomitant]
     Route: 065
  7. OMEPRAZOLE [Concomitant]
     Route: 065
  8. XANAX [Concomitant]
     Route: 065
  9. TRIAMCINOLONE [Concomitant]
     Route: 061

REACTIONS (5)
  - THROMBOCYTOPENIA [None]
  - NEUTROPENIA [None]
  - STOMATITIS [None]
  - DIARRHOEA [None]
  - PYREXIA [None]
